FAERS Safety Report 8137312-4 (Version None)
Quarter: 2012Q1

REPORT INFORMATION
  Report Type: 
  Country: None (occurrence: None)
  Receive Date: 20120210
  Receipt Date: 20120130
  Transmission Date: 20120608
  Serious: Yes (Death, Other)
  Sender: FDA-Public Use
  Company Number: 2012P1003643

PATIENT
  Age: 70 Year
  Sex: Female

DRUGS (3)
  1. HEPARIN [Suspect]
     Indication: COAGULOPATHY
     Dosage: 5,000 IU;TID;SC
     Route: 058
  2. WARFARIN SODIUM [Concomitant]
  3. ANTIPLATELET THERAPY [Concomitant]

REACTIONS (15)
  - HEART RATE INCREASED [None]
  - DYSPNOEA [None]
  - COAGULOPATHY [None]
  - PULMONARY HYPERTENSION [None]
  - THROMBOSIS IN DEVICE [None]
  - FEELING COLD [None]
  - CREPITATIONS [None]
  - MITRAL VALVE STENOSIS [None]
  - HEPARIN-INDUCED THROMBOCYTOPENIA [None]
  - HAEMODYNAMIC INSTABILITY [None]
  - HAEMORRHAGE [None]
  - HYPERHIDROSIS [None]
  - VENOUS PRESSURE JUGULAR INCREASED [None]
  - MULTI-ORGAN FAILURE [None]
  - INTRACARDIAC THROMBUS [None]
